FAERS Safety Report 8533535-0 (Version None)
Quarter: 2012Q3

REPORT INFORMATION
  Report Type: 
  Country: None (occurrence: None)
  Receive Date: 20120724
  Receipt Date: 20120710
  Transmission Date: 20120928
  Serious: Yes (Other)
  Sender: FDA-Public Use
  Company Number: DK-PFIZER INC-2012167321

PATIENT

DRUGS (1)
  1. CYTOTEC [Suspect]
     Dosage: UNK
     Route: 064
     Dates: start: 20120501

REACTIONS (2)
  - APGAR SCORE LOW [None]
  - MATERNAL EXPOSURE TIMING UNSPECIFIED [None]
